FAERS Safety Report 12729279 (Version 1)
Quarter: 2016Q3

REPORT INFORMATION
  Report Type: Spontaneous
  Country: GB (occurrence: GB)
  Receive Date: 20160909
  Receipt Date: 20160909
  Transmission Date: 20161109
  Serious: Yes (Other)
  Sender: FDA-Public Use
  Company Number: GB-PFIZER INC-2016421803

PATIENT
  Age: 19 Year
  Sex: Male
  Weight: 70 kg

DRUGS (1)
  1. SERTRALINE HCL [Suspect]
     Active Substance: SERTRALINE HYDROCHLORIDE
     Dosage: UNK
     Dates: start: 20160802

REACTIONS (1)
  - Acute psychosis [Recovering/Resolving]

NARRATIVE: CASE EVENT DATE: 20160807
